FAERS Safety Report 7676506-9 (Version None)
Quarter: 2011Q3

REPORT INFORMATION
  Report Type: 
  Country: None (occurrence: None)
  Receive Date: 20110809
  Receipt Date: 20110809
  Transmission Date: 20111222
  Serious: No
  Sender: FDA-Public Use
  Company Number: None

PATIENT
  Sex: Male
  Weight: 53 kg

DRUGS (21)
  1. COMBIVENT [Concomitant]
  2. ENSURE PLUS [Concomitant]
  3. PEMETREXED [Suspect]
     Dosage: 800 MG
  4. VICODIN [Concomitant]
  5. COUMADIN [Concomitant]
  6. NICODERM [Concomitant]
  7. ALBUTERUL NEBULIZER SOLUTION [Concomitant]
  8. FLONASE [Concomitant]
  9. ADVAIR DISKUS 100/50 [Concomitant]
  10. OMEPRAZOLE [Concomitant]
  11. ONDANSETRON [Concomitant]
  12. TYLENOL #3 WITH CODEINE [Concomitant]
  13. ZOCOR [Concomitant]
  14. BEVACIZUMAB (RHUMAB VEGF) [Suspect]
     Dosage: 800 MG
  15. ALPRAZOLAM [Concomitant]
  16. DECADRON [Concomitant]
  17. MEGESTROL ACETATE [Concomitant]
  18. SPRIVA [Concomitant]
  19. VIT B 12 [Concomitant]
  20. FOLIC ACID [Concomitant]
  21. MUCINEX [Concomitant]

REACTIONS (1)
  - HAEMORRHAGE [None]
